FAERS Safety Report 14190624 (Version 1)
Quarter: 2017Q4

REPORT INFORMATION
  Report Type: Spontaneous
  Country: US (occurrence: US)
  Receive Date: 20171114
  Receipt Date: 20171114
  Transmission Date: 20180321
  Serious: Yes (Hospitalization)
  Sender: FDA-Public Use
  Company Number: None

PATIENT
  Age: 59 Year
  Sex: Male
  Weight: 78.6 kg

DRUGS (4)
  1. TOBRAMYCIN POWDER [Concomitant]
  2. CALCIUM SULFATE [Suspect]
     Active Substance: CALCIUM SULFATE
  3. VANCOMYCIN POWDER 0.5G ^MYLAN^ [Concomitant]
     Active Substance: VANCOMYCIN
  4. VANCOMYCIN [Concomitant]
     Active Substance: VANCOMYCIN

REACTIONS (4)
  - Skin abrasion [None]
  - Urine output decreased [None]
  - Acute kidney injury [None]
  - Staphylococcal infection [None]

NARRATIVE: CASE EVENT DATE: 20171019
